APPROVED DRUG PRODUCT: HALOPERIDOL
Active Ingredient: HALOPERIDOL
Strength: 5MG
Dosage Form/Route: TABLET;ORAL
Application: A218162 | Product #004 | TE Code: AB
Applicant: CREEKWOOD PHARMACEUTICALS LLC
Approved: Dec 18, 2025 | RLD: No | RS: No | Type: RX